FAERS Safety Report 4430265-1 (Version None)
Quarter: 2004Q3

REPORT INFORMATION
  Report Type: 
  Country: None (occurrence: None)
  Receive Date: 20040820
  Receipt Date: 20040810
  Transmission Date: 20050211
  Serious: Yes (Hospitalization)
  Sender: FDA-Public Use
  Company Number: SE-GLAXOSMITHKLINE-B0342289A

PATIENT
  Age: 29 Year
  Sex: Female

DRUGS (10)
  1. ZYBAN [Suspect]
     Dosage: 150MG TWICE PER DAY
     Route: 048
     Dates: start: 20040507, end: 20040527
  2. STILNOCT [Concomitant]
     Dosage: 10MG PER DAY
     Route: 065
  3. CIPRALEX [Concomitant]
     Dosage: 30MG PER DAY
     Route: 065
  4. IMIGRAN [Concomitant]
     Dosage: 100MG PER DAY
     Route: 065
  5. ATARAX [Concomitant]
     Dosage: 25MG PER DAY
     Route: 065
  6. STESOLID [Concomitant]
     Dosage: 5MG PER DAY
     Route: 065
  7. NITRAZEPAM [Concomitant]
     Dosage: 5MG PER DAY
     Route: 065
  8. DESOLETT [Concomitant]
     Route: 065
  9. DICLOFENAC [Concomitant]
     Dosage: 50MG PER DAY
     Route: 065
  10. PROPYLENE GLYCOL [Concomitant]
     Route: 065

REACTIONS (4)
  - CONFUSIONAL STATE [None]
  - FALL [None]
  - LOWER LIMB FRACTURE [None]
  - PELVIC FRACTURE [None]
